FAERS Safety Report 9137744 (Version 1)
Quarter: 2013Q1

REPORT INFORMATION
  Report Type: Other
  Country: GB (occurrence: GB)
  Receive Date: 20130304
  Receipt Date: 20130304
  Transmission Date: 20140127
  Serious: Yes (Hospitalization)
  Sender: FDA-Public Use
  Company Number: GB-WATSON-2013-03039

PATIENT
  Age: 58 Year
  Sex: Male

DRUGS (3)
  1. METRONIDAZOLE (UNKNOWN) [Suspect]
     Indication: TOOTH ABSCESS
     Dosage: 1 DF, TID
     Route: 048
     Dates: start: 20121226, end: 20121226
  2. IBUPROFEN [Concomitant]
     Indication: BACK PAIN
     Dosage: 200MG
     Route: 048
  3. DIHYDROCODEINE [Concomitant]
     Indication: BACK PAIN
     Dosage: 30MG
     Route: 048

REACTIONS (4)
  - Burning sensation [Recovered/Resolved]
  - Swelling face [Recovered/Resolved]
  - Pyrexia [Recovered/Resolved]
  - Dysphagia [Recovered/Resolved]
